FAERS Safety Report 4361359-7 (Version None)
Quarter: 2004Q2

REPORT INFORMATION
  Report Type: 
  Country: None (occurrence: None)
  Receive Date: 20040519
  Receipt Date: 20040519
  Transmission Date: 20050107
  Serious: Yes (Other)
  Sender: FDA-Public Use
  Company Number: None

PATIENT
  Sex: Female
  Weight: 67.1324 kg

DRUGS (1)
  1. LAMISIL [Suspect]
     Indication: ONYCHOMYCOSIS
     Dosage: 1 PILL ONCE PER D ORAL
     Route: 048
     Dates: start: 20040413, end: 20040517

REACTIONS (2)
  - DYSGEUSIA [None]
  - TONGUE DISCOLOURATION [None]
